FAERS Safety Report 16363958 (Version 1)
Quarter: 2019Q2

REPORT INFORMATION
  Report Type: Spontaneous
  Country: US (occurrence: US)
  Receive Date: 20190528
  Receipt Date: 20190528
  Transmission Date: 20190711
  Serious: Yes (Other)
  Sender: FDA-Public Use
  Company Number: US-GALDERMA-US19030544

PATIENT
  Age: 46 Year
  Sex: Female

DRUGS (4)
  1. ELTA MD 46 SUNBLOCK [Concomitant]
     Indication: PRODUCT USED FOR UNKNOWN INDICATION
  2. ORACEA [Suspect]
     Active Substance: DOXYCYCLINE
     Indication: ROSACEA
     Dosage: 40MG
     Route: 048
     Dates: start: 2013, end: 201808
  3. METROGEL [Suspect]
     Active Substance: METRONIDAZOLE
     Indication: ROSACEA
     Dosage: 1%
     Route: 061
     Dates: start: 2011
  4. DAPSONE 5% [Concomitant]
     Indication: PRODUCT USED FOR UNKNOWN INDICATION
     Dosage: 5%

REACTIONS (5)
  - Antinuclear antibody increased [Unknown]
  - Skin discolouration [Unknown]
  - Skin hypopigmentation [Unknown]
  - Photosensitivity reaction [Unknown]
  - Incorrect product administration duration [Recovered/Resolved]

NARRATIVE: CASE EVENT DATE: 2018
